FAERS Safety Report 7633536-0 (Version None)
Quarter: 2011Q3

REPORT INFORMATION
  Report Type: 
  Country: None (occurrence: None)
  Receive Date: 20110725
  Receipt Date: 20110713
  Transmission Date: 20111222
  Serious: Yes (Death)
  Sender: FDA-Public Use
  Company Number: GB-PFIZER INC-2011111517

PATIENT
  Age: 58 Year
  Sex: Female

DRUGS (7)
  1. DAUNORUBICIN HYDROCHLORIDE [Suspect]
     Indication: ACUTE MYELOID LEUKAEMIA
     Dosage: UNK
     Dates: start: 20100115, end: 20100125
  2. GEMTUZUMAB OZOGAMICIN [Suspect]
     Indication: ACUTE MYELOID LEUKAEMIA
     Dosage: UNK
     Dates: start: 20100115, end: 20100125
  3. CYTARABINE [Suspect]
     Indication: ACUTE MYELOID LEUKAEMIA
     Dosage: UNK
     Dates: start: 20100115, end: 20100125
  4. CYTARABINE [Suspect]
     Indication: MYELODYSPLASTIC SYNDROME
  5. DAUNORUBICIN HYDROCHLORIDE [Suspect]
     Indication: MYELODYSPLASTIC SYNDROME
  6. GEMTUZUMAB OZOGAMICIN [Suspect]
     Indication: MYELODYSPLASTIC SYNDROME
  7. ETOPOSIDE [Concomitant]

REACTIONS (1)
  - NEUTROPENIA [None]
